FAERS Safety Report 18808836 (Version 4)
Quarter: 2021Q4

REPORT INFORMATION
  Report Type: Report from Study
  Country: CN (occurrence: CN)
  Receive Date: 20210129
  Receipt Date: 20211028
  Transmission Date: 20220303
  Serious: Yes (Other)
  Sender: FDA-Public Use
  Company Number: CN-KARYOPHARM-2021KPT000091

PATIENT
  Age: 55 Year
  Sex: Male

DRUGS (24)
  1. SELINEXOR [Suspect]
     Active Substance: SELINEXOR
     Indication: Angiocentric lymphoma
     Dosage: 60 MG, QD
     Route: 048
     Dates: start: 20200905, end: 20200905
  2. SELINEXOR [Suspect]
     Active Substance: SELINEXOR
     Dosage: 10 MG, WEEKLY
     Route: 048
     Dates: start: 20210105, end: 20210119
  3. SELINEXOR [Suspect]
     Active Substance: SELINEXOR
     Dosage: 60 MG, QD
     Route: 048
     Dates: start: 20200916, end: 20200916
  4. SELINEXOR [Suspect]
     Active Substance: SELINEXOR
     Dosage: 60 MG, QD
     Route: 048
     Dates: start: 20200927, end: 20200927
  5. SELINEXOR [Suspect]
     Active Substance: SELINEXOR
     Dosage: 60 MG, QD
     Route: 048
     Dates: start: 20201001, end: 20201001
  6. SELINEXOR [Suspect]
     Active Substance: SELINEXOR
     Dosage: 40 MG, QD
     Route: 048
     Dates: start: 20201028, end: 20201028
  7. SELINEXOR [Suspect]
     Active Substance: SELINEXOR
     Dosage: 40 MG, QD
     Route: 048
     Dates: start: 20201107, end: 20201107
  8. SELINEXOR [Suspect]
     Active Substance: SELINEXOR
     Dosage: 40 MG, QD
     Route: 048
     Dates: start: 20201118, end: 20201118
  9. SELINEXOR [Suspect]
     Active Substance: SELINEXOR
     Dosage: 40 MG, QD
     Route: 048
     Dates: start: 20201125, end: 20201125
  10. SELINEXOR [Suspect]
     Active Substance: SELINEXOR
     Dosage: 40 MG, QD
     Route: 048
     Dates: start: 20201212, end: 20201212
  11. GEMCITABINE [Suspect]
     Active Substance: GEMCITABINE
     Indication: Angiocentric lymphoma
     Dosage: 1.7 G, QD
     Route: 042
     Dates: start: 20200904, end: 20200904
  12. GEMCITABINE [Suspect]
     Active Substance: GEMCITABINE
     Dosage: 1.31 G, QD
     Route: 042
     Dates: start: 20201211, end: 20201211
  13. GEMCITABINE [Suspect]
     Active Substance: GEMCITABINE
     Dosage: 1.7 G, QD
     Route: 042
     Dates: start: 20200915, end: 20200915
  14. GEMCITABINE [Suspect]
     Active Substance: GEMCITABINE
     Dosage: 1.7 G, QD
     Route: 042
     Dates: start: 20200926, end: 20200926
  15. GEMCITABINE [Suspect]
     Active Substance: GEMCITABINE
     Dosage: 1.7 G, QD
     Route: 042
     Dates: start: 20200930, end: 20200930
  16. GEMCITABINE [Suspect]
     Active Substance: GEMCITABINE
     Dosage: 1.31 G, QD
     Route: 042
     Dates: start: 20201027, end: 20201027
  17. GEMCITABINE [Suspect]
     Active Substance: GEMCITABINE
     Dosage: 1.31 G, QD
     Route: 042
     Dates: start: 20201106, end: 20201106
  18. GEMCITABINE [Suspect]
     Active Substance: GEMCITABINE
     Dosage: 1.31 G, QD
     Route: 042
     Dates: start: 20201117, end: 20201117
  19. GEMCITABINE [Suspect]
     Active Substance: GEMCITABINE
     Dosage: 1.31 G, QD
     Route: 042
     Dates: start: 20201124, end: 20201124
  20. OXALIPLATIN [Suspect]
     Active Substance: OXALIPLATIN
     Indication: Angiocentric lymphoma
     Dosage: 221 MG, QD
     Route: 042
     Dates: start: 20200904, end: 20200904
  21. OXALIPLATIN [Suspect]
     Active Substance: OXALIPLATIN
     Dosage: 175 MG, QD
     Route: 042
     Dates: start: 20201211, end: 20201211
  22. OXALIPLATIN [Suspect]
     Active Substance: OXALIPLATIN
     Dosage: 221 MG, QD
     Route: 042
     Dates: start: 20200926, end: 20200926
  23. OXALIPLATIN [Suspect]
     Active Substance: OXALIPLATIN
     Dosage: 175 MG, QD
     Route: 042
     Dates: start: 20201027, end: 20201027
  24. OXALIPLATIN [Suspect]
     Active Substance: OXALIPLATIN
     Dosage: 175 MG, QD
     Route: 042
     Dates: start: 20201117, end: 20201117

REACTIONS (1)
  - Urinary tract obstruction [Not Recovered/Not Resolved]

NARRATIVE: CASE EVENT DATE: 20210114
